FAERS Safety Report 7226533-0 (Version None)
Quarter: 2011Q1

REPORT INFORMATION
  Report Type: 
  Country: None (occurrence: None)
  Receive Date: 20110105
  Receipt Date: 20101220
  Transmission Date: 20110831
  Serious: Yes (Hospitalization)
  Sender: FDA-Public Use
  Company Number: 2008000856

PATIENT
  Age: 64 Year
  Sex: Female

DRUGS (14)
  1. ERLOTINIB (ERLOTINIB) (TABLET) (ERLOTINIB) [Suspect]
     Indication: NON-SMALL CELL LUNG CANCER
     Dosage: 150 MG,QD, ORAL
     Route: 048
     Dates: start: 20080401
  2. XANAX [Concomitant]
  3. CALCIUM NOS [Concomitant]
  4. METOCLOPRAMIDE HYDROCHLORIDE [Concomitant]
  5. BEVACIZUMAB (INJECTION FOR INFUSION) [Suspect]
     Indication: NON-SMALL CELL LUNG CANCER
     Dosage: 15 MG/KG, Q3W, INTRAVENOUS
     Route: 042
     Dates: start: 20080109
  6. LEXAPRO [Concomitant]
  7. PROCHLORPERAZINE MALEATE [Concomitant]
  8. OXYCODONE HCL [Concomitant]
  9. PROMETHAZINE HYDROCHLORIDE (PROMETHAZINE HYDROCLORIDE) [Concomitant]
  10. HYDROMORPHONE HYDRCHLORIDE (HYDROMORPHONE HYDROCHLORIDE) [Concomitant]
  11. AZITHROMYCIN (ANITHROMYCIN) [Concomitant]
  12. BEVACIZUMAB (INJECTION FOR INFUSION) [Suspect]
  13. LEVOFLOXACIN [Concomitant]
  14. POTASSIUM CHLORIDE [Concomitant]

REACTIONS (4)
  - HAEMOPTYSIS [None]
  - HAEMOGLOBIN DECREASED [None]
  - BLOOD SODIUM DECREASED [None]
  - FIBRIN D DIMER INCREASED [None]
